FAERS Safety Report 10247284 (Version 1)
Quarter: 2014Q2

REPORT INFORMATION
  Report Type: Spontaneous
  Country: DK (occurrence: DK)
  Receive Date: 20140619
  Receipt Date: 20140619
  Transmission Date: 20141212
  Serious: Yes (Other)
  Sender: FDA-Public Use
  Company Number: DK-GLAXOSMITHKLINE-B1004934A

PATIENT
  Age: 86 Year
  Sex: 0

DRUGS (3)
  1. RELVAR ELLIPTA [Suspect]
     Indication: ASTHMA
     Route: 055
     Dates: start: 201402, end: 201404
  2. CARDIOVASCULAR DRUGS [Concomitant]
  3. ANTI-CHOLESTEROL MEDICATION [Concomitant]

REACTIONS (1)
  - Pneumonia [Unknown]
